FAERS Safety Report 5848425-1 (Version None)
Quarter: 2008Q3

REPORT INFORMATION
  Report Type: 
  Country: None (occurrence: None)
  Receive Date: 20080818
  Receipt Date: 20080806
  Transmission Date: 20090109
  Serious: Yes (Death)
  Sender: FDA-Public Use
  Company Number: IR-ROCHE-579726

PATIENT
  Age: 34 Year
  Sex: Male

DRUGS (1)
  1. PEGASYS [Suspect]
     Dosage: FORM: PREFILLED SYRINGE
     Route: 065
     Dates: start: 20071201, end: 20080501

REACTIONS (1)
  - CARDIAC DISORDER [None]
